FAERS Safety Report 15248048 (Version 1)
Quarter: 2018Q3

REPORT INFORMATION
  Report Type: Spontaneous
  Country: AR (occurrence: AR)
  Receive Date: 20180807
  Receipt Date: 20180807
  Transmission Date: 20181010
  Serious: Yes (Disabling)
  Sender: FDA-Public Use
  Company Number: AR-AMGEN-ARGSP2018106892

PATIENT
  Age: 50 Year
  Sex: Female

DRUGS (1)
  1. ENBREL [Suspect]
     Active Substance: ETANERCEPT
     Indication: RHEUMATOID ARTHRITIS
     Dosage: 50 MG, WEEKLY
     Route: 065
     Dates: start: 20161015

REACTIONS (3)
  - Gait disturbance [Unknown]
  - Arthropathy [Unknown]
  - Drug ineffective [Unknown]
